FAERS Safety Report 17128702 (Version 1)
Quarter: 2019Q4

REPORT INFORMATION
  Report Type: Spontaneous
  Country: US (occurrence: US)
  Receive Date: 20191206
  Receipt Date: 20191206
  Transmission Date: 20200122
  Serious: Yes (Death)
  Sender: FDA-Public Use
  Company Number: None

PATIENT
  Sex: Female

DRUGS (4)
  1. PROLIA [Suspect]
     Active Substance: DENOSUMAB
  2. SERTRALINE 50MG [Concomitant]
     Active Substance: SERTRALINE HYDROCHLORIDE
  3. MELOXICAM 15MG [Concomitant]
     Active Substance: MELOXICAM
  4. NAMZARIC 28MG/10MG [Concomitant]

REACTIONS (1)
  - Death [None]
